FAERS Safety Report 7980212-0 (Version None)
Quarter: 2011Q4

REPORT INFORMATION
  Report Type: 
  Country: None (occurrence: None)
  Receive Date: 20111214
  Receipt Date: 20111205
  Transmission Date: 20120403
  Serious: Yes (Other)
  Sender: FDA-Public Use
  Company Number: IR-ASTRAZENECA-2011SE73736

PATIENT
  Age: 38 Day
  Sex: Male
  Weight: 3.8 kg

DRUGS (7)
  1. PROPOFOL [Suspect]
     Indication: INDUCTION OF ANAESTHESIA
     Route: 042
  2. MIDAZOLAM [Concomitant]
     Route: 042
  3. ISOFLURANE [Concomitant]
     Indication: MAINTENANCE OF ANAESTHESIA
     Dosage: 1.5-2%
  4. BUPIVACAINE HCL [Concomitant]
     Route: 037
  5. N2O [Concomitant]
     Indication: MAINTENANCE OF ANAESTHESIA
     Dosage: 50%
  6. OXYGEN [Concomitant]
     Indication: MAINTENANCE OF ANAESTHESIA
     Dosage: 50%
  7. LIDOCAINE [Concomitant]

REACTIONS (4)
  - HEART RATE DECREASED [None]
  - BLOOD PRESSURE DECREASED [None]
  - ACCIDENTAL OVERDOSE [None]
  - OXYGEN SATURATION DECREASED [None]
